FAERS Safety Report 20678494 (Version 1)
Quarter: 2022Q2

REPORT INFORMATION
  Report Type: Report from Study
  Country: US (occurrence: US)
  Receive Date: 20220406
  Receipt Date: 20220406
  Transmission Date: 20220720
  Serious: Yes (Other)
  Sender: FDA-Public Use
  Company Number: US-GW PHARMA-202203USGW01709

PATIENT
  Sex: Female

DRUGS (2)
  1. EPIDIOLEX [Interacting]
     Active Substance: CANNABIDIOL
     Indication: Product used for unknown indication
     Dosage: 200 MILLIGRAM
     Route: 048
  2. DOXYCYCLINE [Interacting]
     Active Substance: DOXYCYCLINE
     Indication: Antibiotic therapy
     Dosage: TWICE DAILY FOR 7 DAYS (DOSE NOT REPORTED)
     Route: 065

REACTIONS (3)
  - Drug interaction [Unknown]
  - Gastric disorder [Unknown]
  - Vomiting [Unknown]
